FAERS Safety Report 10450662 (Version 1)
Quarter: 2014Q3

REPORT INFORMATION
  Report Type: Spontaneous
  Country: US (occurrence: None)
  Receive Date: 20140910
  Receipt Date: 20140910
  Transmission Date: 20150326
  Serious: Yes (Other)
  Sender: FDA-Public Use
  Company Number: 2014JUB00121

PATIENT
  Age: 57 Year
  Sex: Female

DRUGS (1)
  1. PREDNISONE (PREDNISONE) UNKNOWN [Suspect]
     Active Substance: PREDNISONE
     Indication: PEMPHIGUS

REACTIONS (2)
  - Hemiparesis [None]
  - Listeria encephalitis [None]
